FAERS Safety Report 6409121-5 (Version None)
Quarter: 2009Q4

REPORT INFORMATION
  Report Type: 
  Country: None (occurrence: None)
  Receive Date: 20091021
  Receipt Date: 20091016
  Transmission Date: 20100525
  Serious: Yes (Disabling, Other)
  Sender: FDA-Public Use
  Company Number: DE-TEVA-212741ISR

PATIENT
  Sex: Male

DRUGS (1)
  1. COPAXONE [Suspect]
     Indication: MULTIPLE SCLEROSIS
     Route: 058
     Dates: start: 20060101

REACTIONS (3)
  - DIABETES MELLITUS [None]
  - GAIT DISTURBANCE [None]
  - WHEELCHAIR USER [None]
